FAERS Safety Report 10060557 (Version 3)
Quarter: 2014Q2

REPORT INFORMATION
  Report Type: Report from Study
  Country: US (occurrence: US)
  Receive Date: 20140404
  Receipt Date: 20140512
  Transmission Date: 20141212
  Serious: Yes (Hospitalization)
  Sender: FDA-Public Use
  Company Number: US-ACTELION-A-US2014-96333

PATIENT
  Age: 38 Year
  Sex: Female

DRUGS (3)
  1. MACITENTAN [Suspect]
     Indication: COR PULMONALE CHRONIC
     Dosage: 10 MG, QD
     Route: 048
     Dates: start: 20140110
  2. REMODULIN [Suspect]
  3. REVATIO [Concomitant]

REACTIONS (11)
  - Cellulitis [Unknown]
  - Erythema [Unknown]
  - Skin disorder [Unknown]
  - Scar [Unknown]
  - Catheter site related reaction [Unknown]
  - Oedema [Unknown]
  - Abdominal distension [Unknown]
  - Bowel movement irregularity [Unknown]
  - Fatigue [Unknown]
  - Asthenia [Unknown]
  - Infusion site pain [Unknown]
